FAERS Safety Report 4994912-8 (Version None)
Quarter: 2006Q2

REPORT INFORMATION
  Report Type: 
  Country: None (occurrence: None)
  Receive Date: 20060508
  Receipt Date: 20060504
  Transmission Date: 20061013
  Serious: Yes (Other)
  Sender: FDA-Public Use
  Company Number: PHNU2006DE01837

PATIENT
  Sex: Female

DRUGS (2)
  1. CAFERGOT [Suspect]
     Indication: MIGRAINE
     Dosage: 1 DF, TID
     Route: 054
     Dates: start: 20040101
  2. CAFERGOT [Suspect]
     Dosage: UNKNOWN
     Route: 054
     Dates: end: 20040101

REACTIONS (1)
  - DRUG ABUSER [None]
